FAERS Safety Report 8790920 (Version 1)
Quarter: 2012Q4

REPORT INFORMATION
  Report Type: Spontaneous
  Country: KR (occurrence: None)
  Receive Date: 20120907
  Receipt Date: 20120907
  Transmission Date: 20130627
  Serious: Yes (Hospitalization)
  Sender: FDA-Public Use
  Company Number: DSA_59221_2012

PATIENT
  Age: 22 Year
  Sex: Male

DRUGS (6)
  1. METRONIDAZOLE (METRONIDAZOLE) [Suspect]
     Indication: CHOLECYSTITIS
     Dosage: (DF)
     Dates: start: 20100208
  2. CEFOTAXIME [Suspect]
     Indication: CHOLECYSTITIS
     Dosage: (DF)
     Dates: start: 201002
  3. PREDNISOLONE [Suspect]
     Indication: DRUG RASH WITH EOSINOPHILIA AND SYSTEMIC SYMPTOMS
     Dosage: (DF)
     Dates: end: 20120328
  4. OSELTAMIVIR [Suspect]
     Indication: H1NI INFLUENZA
     Dosage: (DF)
     Dates: start: 2010
  5. . [Concomitant]
  6. GANCICLOVIR [Concomitant]

REACTIONS (6)
  - Liver abscess [None]
  - Drug reaction with eosinophilia and systemic symptoms [None]
  - Azotaemia [None]
  - Drug clearance decreased [None]
  - Cholestasis [None]
  - Prothrombin time prolonged [None]
